FAERS Safety Report 4399916-4 (Version None)
Quarter: 2004Q3

REPORT INFORMATION
  Report Type: 
  Country: None (occurrence: None)
  Receive Date: 20040716
  Receipt Date: 20040630
  Transmission Date: 20050211
  Serious: Yes (Life-Threatening, Hospitalization)
  Sender: FDA-Public Use
  Company Number: EWC040739857

PATIENT
  Age: 57 Year
  Sex: Female
  Weight: 60 kg

DRUGS (1)
  1. ZYPREXA [Suspect]
     Dosage: 10 MG/1 DAY
     Dates: start: 20021015

REACTIONS (2)
  - ORTHOSTATIC HYPOTENSION [None]
  - PANCYTOPENIA [None]
